FAERS Safety Report 24431266 (Version 1)
Quarter: 2024Q4

REPORT INFORMATION
  Report Type: Spontaneous
  Country: FI (occurrence: FI)
  Receive Date: 20241014
  Receipt Date: 20241014
  Transmission Date: 20250115
  Serious: Yes (Other)
  Sender: EMD SERONO INC
  Company Number: FI-Merck Healthcare KGaA-2024053252

PATIENT
  Age: 35 Year
  Sex: Female

DRUGS (1)
  1. MAVENCLAD [Suspect]
     Active Substance: CLADRIBINE
     Indication: Multiple sclerosis
     Dosage: YEAR ONE WEEK ONE THERAPY
     Dates: start: 20230312, end: 20230316

REACTIONS (10)
  - Depression [Unknown]
  - Bedridden [Not Recovered/Not Resolved]
  - Mental disorder [Unknown]
  - Loss of personal independence in daily activities [Unknown]
  - Thirst [Recovered/Resolved]
  - Headache [Recovered/Resolved]
  - Burning sensation [Recovered/Resolved]
  - Anxiety [Not Recovered/Not Resolved]
  - Tremor [Recovered/Resolved]
  - Balance disorder [Recovered/Resolved]
